FAERS Safety Report 8796076 (Version 3)
Quarter: 2012Q4

REPORT INFORMATION
  Report Type: 
  Country: GR (occurrence: GR)
  Receive Date: 20120920
  Receipt Date: 20121106
  Transmission Date: 20130627
  Serious: Yes (Other)
  Sender: FDA-Public Use
  Company Number: GR-AMGEN-GRCSP2012059117

PATIENT
  Age: 53 Year
  Sex: Female

DRUGS (2)
  1. PROLIA [Suspect]
     Indication: OSTEOPOROSIS
     Dosage: 60 mg, q6mo
     Route: 058
     Dates: start: 201103, end: 201203
  2. PLAQUENIL                          /00072602/ [Concomitant]
     Indication: SYSTEMIC LUPUS ERYTHEMATOSUS
     Dosage: 200 mg, qd
     Route: 048
     Dates: start: 200907

REACTIONS (7)
  - Sarcoidosis [Recovered/Resolved]
  - Interstitial lung disease [Recovered/Resolved]
  - Skin mass [Recovered/Resolved]
  - Pulmonary mass [Recovered/Resolved]
  - Lymphadenopathy mediastinal [Recovered/Resolved]
  - Cough [Recovered/Resolved]
  - Dyspnoea exertional [Recovered/Resolved]
